FAERS Safety Report 12461201 (Version 1)
Quarter: 2016Q2

REPORT INFORMATION
  Report Type: Report from Study
  Country: PE (occurrence: PE)
  Receive Date: 20160613
  Receipt Date: 20160613
  Transmission Date: 20160815
  Serious: Yes (Other)
  Sender: FDA-Public Use
  Company Number: PE-009507513-1606PER003850

PATIENT
  Age: 71 Year
  Sex: Male

DRUGS (1)
  1. JANUMET [Suspect]
     Active Substance: METFORMIN HYDROCHLORIDE\SITAGLIPTIN PHOSPHATE
     Indication: DIABETES MELLITUS
     Dosage: DOSE:50/1000MG, QD
     Route: 048

REACTIONS (5)
  - Cerebrovascular accident [Unknown]
  - Angina unstable [Unknown]
  - Senile dementia [Unknown]
  - Inappropriate schedule of drug administration [Unknown]
  - Dementia Alzheimer^s type [Unknown]

NARRATIVE: CASE EVENT DATE: 201506
